FAERS Safety Report 15045019 (Version 3)
Quarter: 2018Q3

REPORT INFORMATION
  Report Type: Spontaneous
  Country: IT (occurrence: IT)
  Receive Date: 20180621
  Receipt Date: 20180807
  Transmission Date: 20181010
  Serious: Yes (Hospitalization)
  Sender: FDA-Public Use
  Company Number: IT-B.I. PHARMACEUTICALS,INC./RIDGEFIELD-2018-BI-032191

PATIENT
  Age: 66 Year
  Sex: Female

DRUGS (3)
  1. CARDIOASPIRIN [Concomitant]
     Active Substance: ASPIRIN
     Indication: PRODUCT USED FOR UNKNOWN INDICATION
     Dosage: COMPRESSE GASTRORESISTENTI
     Route: 065
  2. JARDIANCE [Suspect]
     Active Substance: EMPAGLIFLOZIN
     Indication: DIABETES MELLITUS
     Route: 065
     Dates: start: 20180201, end: 20180615
  3. LASIX [Concomitant]
     Active Substance: FUROSEMIDE
     Indication: PRODUCT USED FOR UNKNOWN INDICATION
     Dosage: COMPRESSE
     Route: 065

REACTIONS (1)
  - Emphysematous cystitis [Unknown]

NARRATIVE: CASE EVENT DATE: 20180615
